FAERS Safety Report 20788132 (Version 1)
Quarter: 2022Q2

REPORT INFORMATION
  Report Type: Spontaneous
  Country: US (occurrence: US)
  Receive Date: 20220505
  Receipt Date: 20220505
  Transmission Date: 20220721
  Serious: Yes (Other)
  Sender: FDA-Public Use
  Company Number: US-STRIDES ARCOLAB LIMITED-2022SP004248

PATIENT
  Sex: Male

DRUGS (15)
  1. LORATADINE [Suspect]
     Active Substance: LORATADINE
     Indication: Anaphylactic reaction
     Dosage: UNK
     Route: 048
  2. LORATADINE [Suspect]
     Active Substance: LORATADINE
     Dosage: 10 MILLIGRAM, BID, AS PRE-MEDICATIONS
     Route: 065
  3. RANITIDINE [Suspect]
     Active Substance: RANITIDINE
     Indication: Anaphylactic reaction
     Dosage: 150 MILLIGRAM, UNK
     Route: 048
  4. RANITIDINE [Suspect]
     Active Substance: RANITIDINE
     Dosage: 150 MILLIGRAM, BID, AS PRE-MEDICATIONS
     Route: 065
  5. RANITIDINE [Suspect]
     Active Substance: RANITIDINE
     Dosage: UNK, AS PRE-MEDICATIONS
     Route: 065
  6. DIPHENHYDRAMINE [Suspect]
     Active Substance: DIPHENHYDRAMINE
     Indication: Anaphylactic reaction
     Dosage: 25 MILLIGRAM, UNK
     Route: 048
  7. PEGVALIASE [Concomitant]
     Active Substance: PEGVALIASE
     Indication: Phenylketonuria
     Dosage: 10 MILLIGRAM, UNK
     Route: 065
  8. PEGVALIASE [Concomitant]
     Active Substance: PEGVALIASE
     Dosage: 2.5 MILLIGRAM, THREE TIMES PER WEEK FOR TWO WEEKS (RESUMED)
     Route: 065
  9. PEGVALIASE [Concomitant]
     Active Substance: PEGVALIASE
     Dosage: 10 MILLIGRAM, UNK (DOSE INCREASED)
     Route: 065
  10. PEGVALIASE [Concomitant]
     Active Substance: PEGVALIASE
     Dosage: 10 MILLIGRAM, 4 TIMES A WEEK
     Route: 065
  11. PEGVALIASE [Concomitant]
     Active Substance: PEGVALIASE
     Dosage: 10 MILLIGRAM, PER DAY
     Route: 065
  12. PEGVALIASE [Concomitant]
     Active Substance: PEGVALIASE
     Dosage: 20 MILLIGRAM, UNK
     Route: 065
  13. PEGVALIASE [Concomitant]
     Active Substance: PEGVALIASE
     Dosage: 10 MILLIGRAM, PER DAY (RESUMED)
     Route: 065
  14. PEGVALIASE [Concomitant]
     Active Substance: PEGVALIASE
     Dosage: 10 MG/20 MG, ON ALTERNATING DAYS
     Route: 065
  15. PEGVALIASE [Concomitant]
     Active Substance: PEGVALIASE
     Dosage: 20 MILLIGRAM, UNK
     Route: 065

REACTIONS (2)
  - Drug ineffective [Unknown]
  - Off label use [Unknown]
